FAERS Safety Report 12873035 (Version 4)
Quarter: 2017Q1

REPORT INFORMATION
  Report Type: Report from Study
  Country: FR (occurrence: FR)
  Receive Date: 20161021
  Receipt Date: 20170329
  Transmission Date: 20170428
  Serious: Yes (Hospitalization, Disabling)
  Sender: FDA-Public Use
  Company Number: FR-ROCHE-1686886

PATIENT
  Age: 35 Year
  Sex: Female
  Weight: 48 kg

DRUGS (33)
  1. AERIUS [Concomitant]
     Active Substance: DESLORATADINE
     Indication: PRURITUS
     Route: 065
     Dates: start: 20151207
  2. PARACETAMOL [Concomitant]
     Active Substance: ACETAMINOPHEN
     Route: 065
     Dates: start: 20151231, end: 20151231
  3. PARACETAMOL [Concomitant]
     Active Substance: ACETAMINOPHEN
     Route: 065
     Dates: start: 20160121, end: 20160121
  4. SOLU-MEDROL [Concomitant]
     Active Substance: METHYLPREDNISOLONE SODIUM SUCCINATE
     Route: 065
     Dates: start: 20151130, end: 20151130
  5. BACTRIM [Concomitant]
     Active Substance: SULFAMETHOXAZOLE\TRIMETHOPRIM
     Indication: INFECTION
     Route: 065
     Dates: start: 20151117
  6. CLAFORAN (FRANCE) [Concomitant]
     Indication: INFECTION PROPHYLAXIS
     Route: 065
     Dates: start: 20151225, end: 20151229
  7. SOLU-MEDROL [Concomitant]
     Active Substance: METHYLPREDNISOLONE SODIUM SUCCINATE
     Route: 065
     Dates: start: 20151231, end: 20151231
  8. SOLUPRED (FRANCE) [Concomitant]
     Active Substance: PREDNISOLONE
     Route: 065
     Dates: start: 20151130, end: 20151130
  9. OBINUTUZUMAB [Suspect]
     Active Substance: OBINUTUZUMAB
     Indication: DIFFUSE LARGE B-CELL LYMPHOMA
     Dosage: MOST RECENT DOSE PRIOR TO THE EVENT: 07/DEC/2015
     Route: 042
     Dates: start: 20151116, end: 20151207
  10. POLARAMINE [Concomitant]
     Active Substance: DEXCHLORPHENIRAMINE MALEATE
     Indication: PREMEDICATION
     Route: 065
     Dates: start: 20151116, end: 20151116
  11. POLARAMINE [Concomitant]
     Active Substance: DEXCHLORPHENIRAMINE MALEATE
     Route: 065
     Dates: start: 20151130, end: 20151130
  12. POLARAMINE [Concomitant]
     Active Substance: DEXCHLORPHENIRAMINE MALEATE
     Route: 065
     Dates: start: 20151207, end: 20151207
  13. POLARAMINE [Concomitant]
     Active Substance: DEXCHLORPHENIRAMINE MALEATE
     Route: 065
     Dates: start: 20151123, end: 20151123
  14. SOLU-MEDROL [Concomitant]
     Active Substance: METHYLPREDNISOLONE SODIUM SUCCINATE
     Indication: PREMEDICATION
     Route: 065
     Dates: start: 20151116, end: 20151116
  15. SOLUPRED (FRANCE) [Concomitant]
     Active Substance: PREDNISOLONE
     Indication: PREMEDICATION
     Route: 065
     Dates: start: 20151123, end: 20151123
  16. OBINUTUZUMAB [Suspect]
     Active Substance: OBINUTUZUMAB
     Dosage: RESTARTED THERAPY
     Route: 042
     Dates: start: 20160121
  17. SOLUPRED (FRANCE) [Concomitant]
     Active Substance: PREDNISOLONE
     Route: 065
     Dates: start: 20160121, end: 20160121
  18. ZELITREX [Concomitant]
     Active Substance: VALACYCLOVIR HYDROCHLORIDE
     Indication: HERPES ZOSTER
     Route: 065
     Dates: start: 20151116
  19. POLARAMINE [Concomitant]
     Active Substance: DEXCHLORPHENIRAMINE MALEATE
     Route: 065
     Dates: start: 20160121, end: 20160121
  20. ATEZOLIZUMAB [Suspect]
     Active Substance: ATEZOLIZUMAB
     Indication: DIFFUSE LARGE B-CELL LYMPHOMA
     Dosage: MOST RECENT DOSE PRIOR TO THE EVENT: 07/DEC/2015
     Route: 042
     Dates: start: 20151207, end: 20151207
  21. PANTOPRAZOLE [Concomitant]
     Active Substance: PANTOPRAZOLE SODIUM
     Indication: GASTROOESOPHAGEAL REFLUX DISEASE
     Route: 065
     Dates: start: 20151116
  22. TRAMADOL. [Concomitant]
     Active Substance: TRAMADOL
     Indication: CANCER PAIN
     Route: 065
     Dates: start: 20151123, end: 20151128
  23. PARACETAMOL [Concomitant]
     Active Substance: ACETAMINOPHEN
     Route: 065
     Dates: start: 20151130, end: 20151130
  24. PARACETAMOL [Concomitant]
     Active Substance: ACETAMINOPHEN
     Route: 065
     Dates: start: 20151207, end: 20151207
  25. PARACETAMOL [Concomitant]
     Active Substance: ACETAMINOPHEN
     Route: 065
     Dates: start: 20151123, end: 20151123
  26. SOLUPRED (FRANCE) [Concomitant]
     Active Substance: PREDNISOLONE
     Route: 065
     Dates: start: 20151207, end: 20151207
  27. ATEZOLIZUMAB [Suspect]
     Active Substance: ATEZOLIZUMAB
     Dosage: RESTARTED THERAPY
     Route: 042
     Dates: start: 20160121
  28. SODIUM BICARBONATE. [Concomitant]
     Active Substance: SODIUM BICARBONATE
     Indication: ORAL INFECTION
     Route: 065
     Dates: start: 20151117
  29. PARACETAMOL [Concomitant]
     Active Substance: ACETAMINOPHEN
     Indication: PREMEDICATION
     Route: 065
     Dates: start: 20151116, end: 20151116
  30. SOLU-MEDROL [Concomitant]
     Active Substance: METHYLPREDNISOLONE SODIUM SUCCINATE
     Route: 065
     Dates: start: 20151207, end: 20151207
  31. SOLU-MEDROL [Concomitant]
     Active Substance: METHYLPREDNISOLONE SODIUM SUCCINATE
     Route: 065
     Dates: start: 20160121, end: 20160121
  32. POLARAMINE [Concomitant]
     Active Substance: DEXCHLORPHENIRAMINE MALEATE
     Route: 065
     Dates: start: 20151231, end: 20151231
  33. SOLUPRED (FRANCE) [Concomitant]
     Active Substance: PREDNISOLONE
     Route: 065
     Dates: start: 20151231, end: 20151231

REACTIONS (2)
  - Pericardial effusion [Not Recovered/Not Resolved]
  - Pyrexia [Recovered/Resolved]

NARRATIVE: CASE EVENT DATE: 20151211
